FAERS Safety Report 9536629 (Version 1)
Quarter: 2013Q2

REPORT INFORMATION
  Report Type: Spontaneous
  Country: US (occurrence: None)
  Receive Date: 20130517
  Receipt Date: 20130517
  Transmission Date: 20140414
  Serious: Yes (Other)
  Sender: FDA-Public Use
  Company Number: 1000044353

PATIENT
  Sex: Female

DRUGS (2)
  1. VIIBRYD (VILAZODONE HYDROCHLORIDE) (40 MILLIGRAM, TABLET) [Suspect]
     Route: 048
     Dates: start: 2012, end: 2012
  2. VIIBRYD [Suspect]
     Route: 048
     Dates: start: 201210, end: 2012

REACTIONS (3)
  - Balance disorder [None]
  - Asthenia [None]
  - Nausea [None]
